FAERS Safety Report 17423896 (Version 1)
Quarter: 2020Q1

REPORT INFORMATION
  Report Type: Spontaneous
  Country: US (occurrence: US)
  Receive Date: 20200217
  Receipt Date: 20200217
  Transmission Date: 20200409
  Serious: No
  Sender: FDA-Public Use
  Company Number: US-GLENMARK PHARMACEUTICALS-2019GMK045088

PATIENT

DRUGS (1)
  1. CALCIPOTRIENE CREAM 0.005% [Suspect]
     Active Substance: CALCIPOTRIENE
     Indication: PSORIASIS
     Dosage: UNK
     Route: 061
     Dates: end: 20191218

REACTIONS (3)
  - Product administered at inappropriate site [Unknown]
  - Application site rash [Not Recovered/Not Resolved]
  - Application site burn [Unknown]

NARRATIVE: CASE EVENT DATE: 20191211
